FAERS Safety Report 19163970 (Version 3)
Quarter: 2022Q2

REPORT INFORMATION
  Report Type: Spontaneous
  Country: CA (occurrence: CA)
  Receive Date: 20210421
  Receipt Date: 20220519
  Transmission Date: 20220721
  Serious: Yes (Other)
  Sender: FDA-Public Use
  Company Number: CA-GLAXOSMITHKLINE-CACH2021GSK016543

PATIENT

DRUGS (64)
  1. DICLOFENAC [Suspect]
     Active Substance: DICLOFENAC
     Indication: Complex regional pain syndrome
     Dosage: UNK, (OPHTHALMIC SOLUTION)
     Route: 047
  2. ACETAMINOPHEN [Suspect]
     Active Substance: ACETAMINOPHEN
     Indication: Complex regional pain syndrome
     Dosage: UNK
  3. ASPIRIN [Suspect]
     Active Substance: ASPIRIN
     Indication: Complex regional pain syndrome
     Dosage: UNK
  4. DEXTROMETHORPHAN HYDROBROMIDE [Suspect]
     Active Substance: DEXTROMETHORPHAN HYDROBROMIDE
     Indication: Complex regional pain syndrome
     Dosage: UNK
  5. IBUPROFEN [Suspect]
     Active Substance: IBUPROFEN
     Indication: Complex regional pain syndrome
     Dosage: UNK
  6. BUPROPION [Suspect]
     Active Substance: BUPROPION
     Indication: Complex regional pain syndrome
     Dosage: UNK
  7. CAPSAICIN [Suspect]
     Active Substance: CAPSAICIN
     Indication: Complex regional pain syndrome
     Dosage: UNK
  8. CODEINE [Suspect]
     Active Substance: CODEINE
     Indication: Complex regional pain syndrome
     Dosage: UNK
  9. KETOROLAC [Suspect]
     Active Substance: KETOROLAC TROMETHAMINE
     Indication: Complex regional pain syndrome
     Dosage: UNK
  10. LIDOCAINE [Suspect]
     Active Substance: LIDOCAINE
     Indication: Complex regional pain syndrome
     Dosage: UNK
     Route: 061
  11. LIDOCAINE [Suspect]
     Active Substance: LIDOCAINE
     Dosage: UNK
     Route: 062
  12. LIDOCAINE [Suspect]
     Active Substance: LIDOCAINE
     Dosage: UNK
     Route: 042
  13. LIDOCAINE [Suspect]
     Active Substance: LIDOCAINE
     Dosage: UNK GEL
  14. METHADONE HYDROCHLORIDE [Suspect]
     Active Substance: METHADONE HYDROCHLORIDE
     Indication: Complex regional pain syndrome
     Dosage: UNK
  15. CARBAMAZEPINE [Suspect]
     Active Substance: CARBAMAZEPINE
     Indication: Complex regional pain syndrome
     Dosage: UNK
  16. LIDOCAINE\PRILOCAINE HYDROCHLORIDE [Suspect]
     Active Substance: LIDOCAINE\PRILOCAINE HYDROCHLORIDE
     Indication: Complex regional pain syndrome
     Dosage: UNK
  17. EUCALYPTUS OIL [Suspect]
     Active Substance: EUCALYPTUS OIL
     Indication: Complex regional pain syndrome
     Dosage: UNK  DROPS INHALATION
     Route: 055
  18. VENLAFAXINE HYDROCHLORIDE [Suspect]
     Active Substance: VENLAFAXINE HYDROCHLORIDE
     Indication: Complex regional pain syndrome
     Dosage: UNK
  19. AMITRIPTYLINE [Suspect]
     Active Substance: AMITRIPTYLINE
     Indication: Complex regional pain syndrome
     Dosage: 50 MG
  20. AMITRIPTYLINE [Suspect]
     Active Substance: AMITRIPTYLINE
     Dosage: 150 MG
  21. AMITRIPTYLINE [Suspect]
     Active Substance: AMITRIPTYLINE
     Dosage: 150 MG
  22. AMITRIPTYLINE [Suspect]
     Active Substance: AMITRIPTYLINE
     Dosage: 50 MG
  23. CELECOXIB [Suspect]
     Active Substance: CELECOXIB
     Indication: Complex regional pain syndrome
     Dosage: UNK
  24. CITALOPRAM HYDROBROMIDE [Suspect]
     Active Substance: CITALOPRAM HYDROBROMIDE
     Indication: Complex regional pain syndrome
     Dosage: UNK
  25. CLONIDINE [Suspect]
     Active Substance: CLONIDINE
     Indication: Complex regional pain syndrome
     Dosage: UNK
  26. DESIPRAMINE [Suspect]
     Active Substance: DESIPRAMINE
     Indication: Complex regional pain syndrome
     Dosage: UNK
  27. EMLA [Suspect]
     Active Substance: LIDOCAINE\PRILOCAINE
     Indication: Product used for unknown indication
     Dosage: UNK
  28. FENTANYL [Suspect]
     Active Substance: FENTANYL
     Indication: Complex regional pain syndrome
     Dosage: UNK, (1 IN 3 D)
     Route: 062
  29. FENTANYL [Suspect]
     Active Substance: FENTANYL
     Dosage: UNK, (1 IN 3 D)
     Route: 062
  30. FENTANYL [Suspect]
     Active Substance: FENTANYL
     Dosage: UNK
     Route: 062
  31. GABAPENTIN [Suspect]
     Active Substance: GABAPENTIN
     Indication: Complex regional pain syndrome
     Dosage: UNK
  32. HYDROMORPHONE [Suspect]
     Active Substance: HYDROMORPHONE
     Indication: Complex regional pain syndrome
     Dosage: UNK
  33. KETAMINE [Suspect]
     Active Substance: KETAMINE
     Indication: Complex regional pain syndrome
     Dosage: (25 MG,1 IN 12 HR
     Route: 048
  34. KETAMINE [Suspect]
     Active Substance: KETAMINE
     Dosage: 50 MG
     Route: 048
  35. KETAMINE [Suspect]
     Active Substance: KETAMINE
     Dosage: UNK
     Route: 042
  36. MEMANTINE HYDROCHLORIDE [Suspect]
     Active Substance: MEMANTINE HYDROCHLORIDE
     Indication: Complex regional pain syndrome
     Dosage: UNK
  37. MEXILETINE [Suspect]
     Active Substance: MEXILETINE
     Indication: Complex regional pain syndrome
     Dosage: UNK
  38. MORPHINE [Suspect]
     Active Substance: MORPHINE
     Indication: Complex regional pain syndrome
     Dosage: UNK
  39. NAPROXEN [Suspect]
     Active Substance: NAPROXEN
     Indication: Complex regional pain syndrome
     Dosage: UNK
  40. NORTRIPTYLINE HYDROCHLORIDE [Suspect]
     Active Substance: NORTRIPTYLINE HYDROCHLORIDE
     Indication: Complex regional pain syndrome
     Dosage: UNK
  41. OXYCODONE [Suspect]
     Active Substance: OXYCODONE
     Indication: Complex regional pain syndrome
     Dosage: 240 MG (120 MG,1 IN 12 HR)
  42. OXYCODONE [Suspect]
     Active Substance: OXYCODONE
     Dosage: 30 MG, 10 MG,1 IN 8 HR
  43. OXYCODONE [Suspect]
     Active Substance: OXYCODONE
     Dosage: 50 MG (AS REQUIRED (50 MG)
  44. OXYCODONE [Suspect]
     Active Substance: OXYCODONE
     Dosage: 50 MG
  45. OXYCODONE [Suspect]
     Active Substance: OXYCODONE
     Dosage: 240 MG (80 MG,1 IN 8 HR)
  46. OXYCODONE [Suspect]
     Active Substance: OXYCODONE
     Dosage: 120 MG 60 MG,1 IN 12 HR
  47. OXYCODONE [Suspect]
     Active Substance: OXYCODONE
     Dosage: 10 MG (1 EVERY 8 HOURS)
  48. OXYCODONE [Suspect]
     Active Substance: OXYCODONE
     Dosage: 120 MG (1 EVERY 12 HOURS)
  49. OXCARBAZEPINE [Suspect]
     Active Substance: OXCARBAZEPINE
     Indication: Complex regional pain syndrome
     Dosage: UNK
  50. PREGABALIN [Suspect]
     Active Substance: PREGABALIN
     Indication: Complex regional pain syndrome
     Dosage: 300 MG 150 MG,1 IN 12 HR
  51. PREGABALIN [Suspect]
     Active Substance: PREGABALIN
     Dosage: 100 MG (1 EVERY 1 DAYS)
  52. PREGABALIN [Suspect]
     Active Substance: PREGABALIN
     Dosage: 100 MG, 50 MG,1 IN 12 HR
  53. PREGABALIN [Suspect]
     Active Substance: PREGABALIN
     Dosage: 150 MG
  54. PREGABALIN [Suspect]
     Active Substance: PREGABALIN
     Dosage: 300 MG ,1 EVERY 1 DAYS
  55. DULOXETINE [Suspect]
     Active Substance: DULOXETINE
     Indication: Complex regional pain syndrome
     Dosage: UNK
  56. TRAMADOL [Suspect]
     Active Substance: TRAMADOL
     Indication: Complex regional pain syndrome
     Dosage: UNK
  57. CAPSICUM OLEORESIN [Suspect]
     Active Substance: CAPSICUM OLEORESIN
  58. HERBALS [Suspect]
     Active Substance: HERBALS
     Indication: Complex regional pain syndrome
     Dosage: UNK GLOBULES ORAL
     Route: 048
  59. LAVENDER OIL [Suspect]
     Active Substance: LAVENDER OIL
     Indication: Complex regional pain syndrome
     Dosage: UNK
  60. VENLAFAXINE HYDROCHLORIDE [Suspect]
     Active Substance: VENLAFAXINE HYDROCHLORIDE
     Indication: Complex regional pain syndrome
     Dosage: UNK
  61. HERBALS [Suspect]
     Active Substance: HERBALS
     Indication: Complex regional pain syndrome
     Dosage: UNK
  62. TOPIRAMATE [Suspect]
     Active Substance: TOPIRAMATE
     Indication: Complex regional pain syndrome
     Dosage: UNK
  63. ROSEMARY OIL [Suspect]
     Active Substance: ROSEMARY OIL
     Indication: Complex regional pain syndrome
     Dosage: UNK
     Route: 055
  64. CAPSICUM ANNUUM [Suspect]
     Active Substance: CAPSICUM
     Indication: Complex regional pain syndrome
     Dosage: UNK

REACTIONS (3)
  - Therapy non-responder [Unknown]
  - Immune thrombocytopenia [Unknown]
  - Weight increased [Unknown]
